FAERS Safety Report 7415303-6 (Version None)
Quarter: 2011Q2

REPORT INFORMATION
  Report Type: 
  Country: None (occurrence: None)
  Receive Date: 20110406
  Receipt Date: 20110325
  Transmission Date: 20111010
  Serious: Yes (Other)
  Sender: FDA-Public Use
  Company Number: JPI-P-013863

PATIENT
  Age: 38 Year
  Sex: Female
  Weight: 67.1324 kg

DRUGS (9)
  1. XYREM [Suspect]
     Indication: CATAPLEXY
     Dosage: 4.5 GM (2.25 GM, 2 IN 1 D), ORAL; (TITRATING DOSE), ORAL; 9 GM (4.5 GM, 2 IN 1 D), ORAL
     Route: 048
     Dates: start: 20110101
  2. XYREM [Suspect]
     Indication: CATAPLEXY
     Dosage: 4.5 GM (2.25 GM, 2 IN 1 D), ORAL; (TITRATING DOSE), ORAL; 9 GM (4.5 GM, 2 IN 1 D), ORAL
     Route: 048
     Dates: start: 20110119, end: 20110101
  3. CETIRIZINE HCL [Concomitant]
  4. DULOXETINE HYDROCHLORIDE [Concomitant]
  5. UNSEPCIFIED ANTI-DEPRESSANTS [Concomitant]
  6. ARMODAFINIL [Suspect]
     Indication: PRODUCT USED FOR UNKNOWN INDICATION
     Dosage: ORAL
     Route: 048
     Dates: start: 20110311
  7. CLONAZEPAM [Concomitant]
  8. L-METHYLFOLATE [Concomitant]
  9. LEVETIRACETAM [Concomitant]

REACTIONS (9)
  - SCREAMING [None]
  - ANGER [None]
  - CRYING [None]
  - HANGOVER [None]
  - AMNESIA [None]
  - ARTHRALGIA [None]
  - HALLUCINATION [None]
  - FATIGUE [None]
  - ANXIETY [None]
